FAERS Safety Report 19287125 (Version 1)
Quarter: 2021Q2

REPORT INFORMATION
  Report Type: Spontaneous
  Country: US (occurrence: US)
  Receive Date: 20210521
  Receipt Date: 20210521
  Transmission Date: 20210717
  Serious: No
  Sender: FDA-Public Use
  Company Number: US-ARBOR PHARMACEUTICALS, LLC-US-2020ARB000786

PATIENT
  Sex: Male

DRUGS (4)
  1. HORIZANT [Suspect]
     Active Substance: GABAPENTIN ENACARBIL
     Dosage: 300 MG AT 5 PM, UNK
     Route: 048
  2. HORIZANT [Suspect]
     Active Substance: GABAPENTIN ENACARBIL
     Indication: RESTLESS LEGS SYNDROME
     Dosage: 600 MG, UNK
     Route: 048
  3. VALIUM [Concomitant]
     Active Substance: DIAZEPAM
     Indication: PRODUCT USED FOR UNKNOWN INDICATION
     Dosage: 20 MG, UNK
  4. CYMBALTA [Suspect]
     Active Substance: DULOXETINE HYDROCHLORIDE
     Indication: NEUROPATHY PERIPHERAL
     Dosage: UNK
     Dates: start: 202009

REACTIONS (5)
  - Somnolence [Unknown]
  - Drug interaction [Unknown]
  - Drug ineffective [Unknown]
  - Intentional product use issue [Unknown]
  - Wrong technique in product usage process [Unknown]
